FAERS Safety Report 6507943-3 (Version None)
Quarter: 2009Q4

REPORT INFORMATION
  Report Type: 
  Country: None (occurrence: None)
  Receive Date: 20091221
  Receipt Date: 20091214
  Transmission Date: 20100525
  Serious: Yes (Life-Threatening, Hospitalization)
  Sender: FDA-Public Use
  Company Number: B0615034A

PATIENT
  Sex: Male

DRUGS (8)
  1. ZYLORIC [Suspect]
     Indication: HYPERURICAEMIA
     Dosage: 100MG PER DAY
     Route: 048
     Dates: end: 20090926
  2. NEBILOX [Suspect]
     Indication: HYPERTENSION
     Route: 048
     Dates: start: 20090101, end: 20090901
  3. LASILIX FAIBLE [Suspect]
     Indication: HYPERTENSION
     Dosage: 10MG PER DAY
     Route: 048
     Dates: end: 20090926
  4. HEMIGOXINE [Suspect]
     Indication: ATRIAL FIBRILLATION
     Dosage: 1UNIT PER DAY
     Route: 048
     Dates: end: 20090926
  5. CORDARONE [Suspect]
     Indication: ATRIAL FIBRILLATION
     Dosage: 1UNIT PER DAY
     Route: 048
     Dates: end: 20090926
  6. DIFFU K [Concomitant]
     Indication: DRUG USE FOR UNKNOWN INDICATION
     Route: 048
  7. VALSARTAN AND HYDROCHLOROTHIAZIDE [Concomitant]
     Indication: DRUG USE FOR UNKNOWN INDICATION
     Route: 048
  8. TAHOR [Concomitant]
     Indication: DRUG USE FOR UNKNOWN INDICATION
     Route: 048

REACTIONS (4)
  - ELECTROCARDIOGRAM QT PROLONGED [None]
  - SINUS BRADYCARDIA [None]
  - SYNCOPE [None]
  - TORSADE DE POINTES [None]
